FAERS Safety Report 8049845-X (Version None)
Quarter: 2012Q1

REPORT INFORMATION
  Report Type: 
  Country: None (occurrence: None)
  Receive Date: 20120117
  Receipt Date: 20120106
  Transmission Date: 20120608
  Serious: Yes (Hospitalization)
  Sender: FDA-Public Use
  Company Number: FR-SANOFI-AVENTIS-2012SA001342

PATIENT
  Age: 83 Year
  Sex: Male

DRUGS (3)
  1. MYAMBUTOL [Suspect]
     Route: 065
     Dates: start: 20100929
  2. RIFADIN [Suspect]
     Route: 065
     Dates: start: 20100929
  3. MYAMBUTOL [Suspect]
     Route: 065
     Dates: start: 20110212

REACTIONS (6)
  - DRUG RASH WITH EOSINOPHILIA AND SYSTEMIC SYMPTOMS [None]
  - MONONUCLEOSIS SYNDROME [None]
  - EOSINOPHILIA [None]
  - RASH ERYTHEMATOUS [None]
  - OEDEMA [None]
  - LYMPHOPENIA [None]
